FAERS Safety Report 10420703 (Version 1)
Quarter: 2014Q3

REPORT INFORMATION
  Report Type: Spontaneous
  Country: US (occurrence: None)
  Receive Date: 20140829
  Receipt Date: 20140829
  Transmission Date: 20150326
  Serious: Yes (Hospitalization, Other)
  Sender: FDA-Public Use
  Company Number: None

PATIENT
  Age: 52 Year
  Sex: Female
  Weight: 123.83 kg

DRUGS (2)
  1. TOPIRAMATE 25 MG ZYDUS [Suspect]
     Active Substance: TOPIRAMATE
     Indication: HEADACHE
     Dosage: 2 PILLS  TWICE DAILY TAKEN BY MOUTH
     Route: 048
     Dates: start: 20140808, end: 20140822
  2. TOPIRAMATE 25 MG ZYDUS [Suspect]
     Active Substance: TOPIRAMATE
     Indication: PAIN
     Dosage: 2 PILLS  TWICE DAILY TAKEN BY MOUTH
     Route: 048
     Dates: start: 20140808, end: 20140822

REACTIONS (13)
  - Fatigue [None]
  - Emotional disorder [None]
  - Dyspnoea [None]
  - Swollen tongue [None]
  - Transient ischaemic attack [None]
  - Confusional state [None]
  - Gait disturbance [None]
  - Speech disorder [None]
  - Headache [None]
  - Balance disorder [None]
  - Asthenia [None]
  - Mental impairment [None]
  - Paraesthesia [None]

NARRATIVE: CASE EVENT DATE: 20140815
